FAERS Safety Report 19294955 (Version 3)
Quarter: 2022Q1

REPORT INFORMATION
  Report Type: Spontaneous
  Country: US (occurrence: US)
  Receive Date: 20210524
  Receipt Date: 20220322
  Transmission Date: 20220423
  Serious: No
  Sender: FDA-Public Use
  Company Number: US-PFIZER INC-2020391436

PATIENT
  Age: 11 Year
  Sex: Female
  Weight: 51.71 kg

DRUGS (3)
  1. GENOTROPIN [Suspect]
     Active Substance: SOMATROPIN
     Indication: Growth disorder
     Dosage: 2.3 MG, 6 TIMES A WEEK
     Dates: end: 202010
  2. GENOTROPIN [Suspect]
     Active Substance: SOMATROPIN
     Dosage: 2.6 MG, 6 TIMES A WEEK
     Dates: start: 202010
  3. GENOTROPIN [Suspect]
     Active Substance: SOMATROPIN
     Dosage: 3 MG, BY INJECTION EVERY NIGHT 6 TIMES A WEEK

REACTIONS (3)
  - Poor quality device used [Unknown]
  - Drug dose omission by device [Unknown]
  - Device leakage [Unknown]
